FAERS Safety Report 9768442 (Version 2)
Quarter: 2014Q1

REPORT INFORMATION
  Report Type: Spontaneous
  Country: FR (occurrence: FR)
  Receive Date: 20131217
  Receipt Date: 20140108
  Transmission Date: 20141002
  Serious: Yes (Hospitalization)
  Sender: FDA-Public Use
  Company Number: FR-ABBVIE-13P-056-1180977-00

PATIENT
  Sex: Female
  Weight: 65 kg

DRUGS (3)
  1. HUMIRA [Suspect]
     Indication: RHEUMATOID ARTHRITIS
     Route: 058
     Dates: start: 20110507, end: 2013
  2. HUMIRA [Suspect]
  3. MORPHINE SULFATE [Suspect]
     Indication: ARTHRALGIA

REACTIONS (2)
  - Psychotic disorder [Unknown]
  - Arthropathy [Unknown]
